FAERS Safety Report 12625250 (Version 4)
Quarter: 2016Q4

REPORT INFORMATION
  Report Type: Report from Study
  Country: US (occurrence: US)
  Receive Date: 20160805
  Receipt Date: 20161129
  Transmission Date: 20170207
  Serious: Yes (Death, Other)
  Sender: FDA-Public Use
  Company Number: US-AMGEN-USASL2016100084

PATIENT
  Age: 82 Year
  Sex: Female
  Weight: 64.85 kg

DRUGS (2)
  1. PROLIA [Suspect]
     Active Substance: DENOSUMAB
     Indication: OSTEOPOROSIS
     Dosage: 60, Q6MO
     Route: 065
     Dates: start: 2012, end: 20160128
  2. NADOLOL. [Concomitant]
     Active Substance: NADOLOL
     Indication: CARDIAC DISORDER
     Dosage: 20 UNK, QD

REACTIONS (1)
  - Cardiac arrest [Fatal]
